FAERS Safety Report 8461596-6 (Version None)
Quarter: 2012Q2

REPORT INFORMATION
  Report Type: 
  Country: None (occurrence: None)
  Receive Date: 20120625
  Receipt Date: 20120618
  Transmission Date: 20120825
  Serious: Yes (Hospitalization)
  Sender: FDA-Public Use
  Company Number: PHHY2011US15002

PATIENT
  Sex: Male

DRUGS (2)
  1. EXJADE [Suspect]
     Indication: IRON METABOLISM DISORDER
  2. EXJADE [Suspect]
     Indication: SICKLE CELL ANAEMIA
     Dosage: 1250 MG, QD
     Route: 048
     Dates: end: 20100301

REACTIONS (1)
  - LABORATORY TEST ABNORMAL [None]
